FAERS Safety Report 6311729-2 (Version None)
Quarter: 2009Q3

REPORT INFORMATION
  Report Type: 
  Country: None (occurrence: None)
  Receive Date: 20090817
  Receipt Date: 20090807
  Transmission Date: 20100115
  Serious: Yes (Hospitalization, Disabling, Other)
  Sender: FDA-Public Use
  Company Number: BR-ASTRAZENECA-2009SE07554

PATIENT
  Age: 53 Year
  Sex: Male

DRUGS (1)
  1. LOSEC MUPS [Suspect]
     Indication: ULCER
     Route: 048
     Dates: start: 19830101

REACTIONS (5)
  - ANGIOSARCOMA [None]
  - BREAST CANCER [None]
  - BREAST CANCER RECURRENT [None]
  - FOOT FRACTURE [None]
  - LOWER LIMB FRACTURE [None]
